FAERS Safety Report 9235792 (Version 1)
Quarter: 2013Q2

REPORT INFORMATION
  Report Type: Spontaneous
  Country: US (occurrence: None)
  Receive Date: 20130416
  Receipt Date: 20130416
  Transmission Date: 20140414
  Serious: No
  Sender: FDA-Public Use
  Company Number: None

PATIENT
  Age: 75 Year
  Sex: Female

DRUGS (2)
  1. DABIGATRAN [Suspect]
     Indication: ATRIAL FIBRILLATION
     Dosage: PRIOR TO ADMISSION 150 MG BID PO
     Route: 048
  2. ASPIRIN [Suspect]
     Indication: CEREBROVASCULAR ACCIDENT
     Dosage: PRIOR TO ADMISSION 81 MG DAILY PO
     Route: 048

REACTIONS (3)
  - Gastrointestinal haemorrhage [None]
  - Haematemesis [None]
  - Faeces discoloured [None]
